FAERS Safety Report 8519967-5 (Version None)
Quarter: 2012Q2

REPORT INFORMATION
  Report Type: 
  Country: None (occurrence: None)
  Receive Date: 20120406
  Receipt Date: 20090826
  Transmission Date: 20120825
  Serious: Yes (Other)
  Sender: FDA-Public Use
  Company Number: PHEH2009US09975

PATIENT
  Age: 37 Year
  Sex: Female

DRUGS (1)
  1. TASIGNA [Suspect]
     Indication: CHRONIC MYELOID LEUKAEMIA
     Dosage: 400 MG, BID, ORAL
     Route: 048
     Dates: start: 20090221

REACTIONS (13)
  - CHEST PAIN [None]
  - RASH ERYTHEMATOUS [None]
  - CONSTIPATION [None]
  - PLEURAL EFFUSION [None]
  - RASH PRURITIC [None]
  - HYPOAESTHESIA [None]
  - PARAESTHESIA [None]
  - DIARRHOEA [None]
  - NEUROPATHY PERIPHERAL [None]
  - FATIGUE [None]
  - GOITRE [None]
  - PALPITATIONS [None]
  - HEADACHE [None]
